FAERS Safety Report 8299830-8 (Version None)
Quarter: 2012Q2

REPORT INFORMATION
  Report Type: 
  Country: None (occurrence: None)
  Receive Date: 20120419
  Receipt Date: 20120417
  Transmission Date: 20120825
  Serious: No
  Sender: FDA-Public Use
  Company Number: JP-B.I. PHARMACEUTICALS,INC./RIDGEFIELD-2012-BP-05096NB

PATIENT
  Age: 76 Year
  Sex: Male

DRUGS (14)
  1. SILECE [Concomitant]
     Route: 065
  2. MARZULENE-S [Concomitant]
     Dosage: 1.5 G
     Route: 065
  3. DORAL [Concomitant]
     Route: 065
  4. FEBURIC [Concomitant]
     Route: 065
  5. MAGMITT [Concomitant]
     Route: 065
  6. VESICARE OD [Concomitant]
     Route: 065
  7. BISOPROLOL FUMARATE [Concomitant]
     Route: 065
  8. CLOPIDOGREL BISULFATE [Concomitant]
  9. PRADAXA [Suspect]
     Dosage: 300 MG
     Route: 048
     Dates: start: 20120123
  10. CRESTOR [Concomitant]
     Route: 065
  11. PRADAXA [Suspect]
     Route: 048
  12. LOSARTAN POTASSIUM [Concomitant]
     Route: 065
  13. AMLODIPINE BESYLATE [Concomitant]
     Route: 065
  14. BEZATOL SR [Concomitant]
     Route: 065

REACTIONS (1)
  - HEADACHE [None]
